FAERS Safety Report 24159698 (Version 2)
Quarter: 2024Q3

REPORT INFORMATION
  Report Type: Spontaneous
  Country: US (occurrence: US)
  Receive Date: 20240731
  Receipt Date: 20240812
  Transmission Date: 20241017
  Serious: Yes (Life-Threatening, Hospitalization)
  Sender: TEVA
  Company Number: US-TEVA-VS-3225916

PATIENT
  Age: 2 Month
  Sex: Male

DRUGS (3)
  1. BUDESONIDE [Suspect]
     Active Substance: BUDESONIDE
     Indication: Pneumonitis
     Dosage: FOR TWO MONTHS
     Route: 065
  2. AZITHROMYCIN [Concomitant]
     Active Substance: AZITHROMYCIN
     Indication: Antibiotic therapy
     Dosage: FOR 2 MONTHS
     Route: 065
  3. HYDROXYCHLOROQUINE [Concomitant]
     Active Substance: HYDROXYCHLOROQUINE
     Indication: Evidence based treatment
     Dosage: FOR 2 MONTHS
     Route: 065

REACTIONS (1)
  - Drug ineffective [Unknown]
